FAERS Safety Report 7463887-4 (Version None)
Quarter: 2011Q2

REPORT INFORMATION
  Report Type: 
  Country: None (occurrence: None)
  Receive Date: 20110506
  Receipt Date: 20110427
  Transmission Date: 20111010
  Serious: Yes (Death)
  Sender: FDA-Public Use
  Company Number: JP-PFIZER INC-2011042456

PATIENT
  Sex: Female
  Weight: 58 kg

DRUGS (8)
  1. ASPIRIN [Concomitant]
     Indication: ARRHYTHMIA
     Dosage: UNK
     Route: 048
     Dates: start: 20091124, end: 20110124
  2. IRBESARTAN [Concomitant]
     Indication: ANGINA PECTORIS
  3. IRBESARTAN [Concomitant]
     Indication: HYPERTENSION
     Dosage: UNK
     Route: 048
     Dates: start: 20100722, end: 20110124
  4. AMLODIPINE BESYLATE AND ATORVASTATIN CALCIUM [Suspect]
     Indication: HYPERTENSION
     Dosage: 5 MG/5 MG, 1X/DAY
     Route: 048
     Dates: start: 20101114
  5. GLUFAST [Concomitant]
     Indication: DIABETES MELLITUS
     Dosage: UNK
     Route: 048
     Dates: end: 20110124
  6. AMLODIPINE BESYLATE AND ATORVASTATIN CALCIUM [Suspect]
     Indication: ANGINA PECTORIS
  7. AMLODIPINE BESYLATE AND ATORVASTATIN CALCIUM [Suspect]
     Indication: HYPERCHOLESTEROLAEMIA
  8. IRBESARTAN [Concomitant]
     Indication: HYPERCHOLESTEROLAEMIA

REACTIONS (1)
  - DEATH [None]
